FAERS Safety Report 9100946 (Version 3)
Quarter: 2013Q2

REPORT INFORMATION
  Report Type: Report from Study
  Country: AU (occurrence: AU)
  Receive Date: 20130215
  Receipt Date: 20130514
  Transmission Date: 20140414
  Serious: Yes (Death, Other)
  Sender: FDA-Public Use
  Company Number: AU-ROCHE-1191526

PATIENT
  Age: 66 Year
  Sex: Female

DRUGS (7)
  1. AVASTIN [Suspect]
     Indication: GLIOMA
     Route: 042
     Dates: end: 20130130
  2. TAMOXIFEN [Concomitant]
     Route: 065
     Dates: start: 201301
  3. DEXAMETHASONE [Concomitant]
     Route: 048
  4. KEPPRA [Concomitant]
  5. LAMICTAL [Concomitant]
  6. INSULIN [Concomitant]
  7. METFORMIN [Concomitant]
     Route: 065

REACTIONS (3)
  - Status epilepticus [Fatal]
  - Sepsis [Fatal]
  - Disease progression [Unknown]
